FAERS Safety Report 9437603 (Version 1)
Quarter: 2013Q3

REPORT INFORMATION
  Report Type: Spontaneous
  Country: US (occurrence: US)
  Receive Date: 20130802
  Receipt Date: 20130802
  Transmission Date: 20140515
  Serious: Yes (Hospitalization)
  Sender: FDA-Public Use
  Company Number: US-BAYER-2013-091495

PATIENT
  Sex: Male
  Weight: 108.39 kg

DRUGS (4)
  1. BAYER GENUINE ASPIRIN ORIGINAL STRENGTH [Suspect]
     Indication: HEADACHE
     Dosage: 2 DF, PRN
     Route: 048
  2. CALCIUM [Concomitant]
  3. LISINOPRIL [Concomitant]
  4. VITAMIN C [Concomitant]

REACTIONS (3)
  - Syncope [None]
  - Subdural haematoma [None]
  - Headache [None]
